FAERS Safety Report 7777007 (Version 7)
Quarter: 2013Q1

REPORT INFORMATION
  Report Type: Report from Study
  Country: US (occurrence: US)
  Receive Date: 20110127
  Receipt Date: 20130226
  Transmission Date: 20140127
  Serious: Yes (Other)
  Sender: FDA-Public Use
  Company Number: US-ASTRAZENECA-2011SE03361

PATIENT
  Age: 82 Year
  Sex: Female

DRUGS (11)
  1. ARIMIDEX [Suspect]
     Route: 048
     Dates: start: 2006
  2. ARIMIDEX [Suspect]
     Dosage: GENERIC
     Route: 048
     Dates: start: 2010
  3. ARIMIDEX [Suspect]
     Route: 048
  4. NEXIUM [Suspect]
     Route: 048
     Dates: start: 2006
  5. NEXIUM [Suspect]
     Route: 048
  6. ANTIBIOTICS [Suspect]
     Route: 065
  7. DIOVAN [Concomitant]
  8. LASIX [Concomitant]
  9. ASPIRIN [Concomitant]
  10. CITALOPRAM [Concomitant]
  11. VITAMINS [Concomitant]

REACTIONS (15)
  - Thrombosis [Unknown]
  - Neoplasm malignant [Unknown]
  - Fall [Unknown]
  - Oropharyngeal pain [Unknown]
  - Hiatus hernia [Unknown]
  - Hearing impaired [Unknown]
  - Tooth disorder [Unknown]
  - Gastric disorder [Unknown]
  - Wrist fracture [Unknown]
  - Bone pain [Unknown]
  - Osteoarthritis [Unknown]
  - Osteoarthritis [Unknown]
  - Polyarthritis [Unknown]
  - Dry mouth [Unknown]
  - Intentional drug misuse [Unknown]
